FAERS Safety Report 20747238 (Version 2)
Quarter: 2022Q2

REPORT INFORMATION
  Report Type: Spontaneous
  Country: AU (occurrence: AU)
  Receive Date: 20220425
  Receipt Date: 20220506
  Transmission Date: 20220721
  Serious: Yes (Other)
  Sender: FDA-Public Use
  Company Number: AU-BAUSCH-BL-2022-009790

PATIENT
  Age: 70 Year
  Sex: Female

DRUGS (3)
  1. PREDNISOLONE [Suspect]
     Active Substance: PREDNISOLONE
     Indication: Sinusitis
     Route: 048
  2. PREDNISOLONE [Suspect]
     Active Substance: PREDNISOLONE
     Route: 030
  3. KEFLEX [Suspect]
     Active Substance: CEPHALEXIN
     Indication: Sinusitis
     Route: 065

REACTIONS (8)
  - Altered state of consciousness [Unknown]
  - Asthenia [Unknown]
  - Diarrhoea [Unknown]
  - Dyspnoea [Unknown]
  - Feeding disorder [Unknown]
  - Red blood cell abnormality [Unknown]
  - Vomiting [Unknown]
  - Ill-defined disorder [Unknown]
